FAERS Safety Report 9234435 (Version 1)
Quarter: 2013Q2

REPORT INFORMATION
  Report Type: Spontaneous
  Country: IT (occurrence: IT)
  Receive Date: 20130416
  Receipt Date: 20130416
  Transmission Date: 20140414
  Serious: Yes (Hospitalization, Other)
  Sender: FDA-Public Use
  Company Number: IT-ALEXION PHARMACEUTICALS INC.-A201300198

PATIENT
  Age: 41 Year
  Sex: Female

DRUGS (12)
  1. SOLIRIS 300MG [Suspect]
     Indication: HAEMOLYTIC URAEMIC SYNDROME
     Dosage: 900 MG, QW
     Route: 042
     Dates: start: 20120905, end: 20120926
  2. SOLIRIS 300MG [Suspect]
     Dosage: 1200 MG, Q2W
     Route: 042
     Dates: start: 20121003, end: 20121128
  3. SOLIRIS 300MG [Suspect]
     Dosage: 900 MG, Q2W
     Route: 042
     Dates: start: 20121212, end: 20121227
  4. URBASON [Concomitant]
     Dosage: 4 MG, QD
  5. AZATIOPRIN [Concomitant]
     Dosage: 50 MG, QD
     Route: 048
  6. ENALAPRIL [Concomitant]
     Indication: HYPERTENSION
     Dosage: 40 MG, UNK
     Route: 048
  7. NIFEDIPINA [Concomitant]
     Indication: HYPERTENSION
     Dosage: 60 MG, QD
     Route: 048
  8. DOXAZOSIN [Concomitant]
     Indication: HYPERTENSION
     Dosage: 8 MG, QD
     Route: 048
  9. CLONIDINE [Concomitant]
     Indication: HYPERTENSION
     Dosage: 5 MG, UNK
     Route: 062
  10. LASIX [Concomitant]
     Dosage: 50 MG, QD
  11. DARBEPOETIN ALFA [Concomitant]
     Dosage: 40 ?G, QW
  12. CALCITROL [Concomitant]
     Dosage: 0.25 ?G, QD
     Route: 048

REACTIONS (3)
  - Renal failure [Recovering/Resolving]
  - Streptococcal urinary tract infection [Unknown]
  - Chronic allograft nephropathy [Not Recovered/Not Resolved]
